FAERS Safety Report 22283944 (Version 2)
Quarter: 2023Q2

REPORT INFORMATION
  Report Type: Spontaneous
  Country: IE (occurrence: None)
  Receive Date: 20230504
  Receipt Date: 20230529
  Transmission Date: 20230722
  Serious: Yes (Hospitalization, Other)
  Sender: FDA-Public Use
  Company Number: IE-Unichem Pharmaceuticals (USA) Inc-UCM202304-000520

PATIENT
  Sex: Female

DRUGS (7)
  1. ZONISAMIDE [Suspect]
     Active Substance: ZONISAMIDE
     Indication: Product used for unknown indication
  2. ZONISAMIDE [Suspect]
     Active Substance: ZONISAMIDE
  3. ZONISAMIDE [Suspect]
     Active Substance: ZONISAMIDE
     Dosage: THEN WEANING IT BY 50 MG EVERY DAY OVER 7 DAYS TO STOP
  4. TERBUTALINE [Concomitant]
     Active Substance: TERBUTALINE
     Indication: Product used for unknown indication
     Dosage: UNKNOWN
  5. BUDESONIDE\FORMOTEROL [Concomitant]
     Active Substance: BUDESONIDE\FORMOTEROL
     Indication: Product used for unknown indication
     Dosage: UNKNOWN
  6. MONTELUKAST [Concomitant]
     Active Substance: MONTELUKAST SODIUM
     Indication: Product used for unknown indication
     Dosage: UNKNOWN
  7. LAMOTRIGINE [Concomitant]
     Active Substance: LAMOTRIGINE
     Indication: Product used for unknown indication
     Dosage: NOCTE

REACTIONS (3)
  - Hypokalaemia [Recovering/Resolving]
  - Renal tubular acidosis [Recovering/Resolving]
  - Electrocardiogram QT prolonged [Recovering/Resolving]
